FAERS Safety Report 18771425 (Version 1)
Quarter: 2021Q1

REPORT INFORMATION
  Report Type: Spontaneous
  Country: US (occurrence: US)
  Receive Date: 20210122
  Receipt Date: 20210122
  Transmission Date: 20210419
  Serious: No
  Sender: FDA-Public Use
  Company Number: US-SA-2021SA015639

PATIENT
  Sex: Female

DRUGS (1)
  1. CAMPATH [Suspect]
     Active Substance: ALEMTUZUMAB
     Route: 065

REACTIONS (2)
  - CD4 lymphocytes abnormal [Unknown]
  - Rhinorrhoea [Recovered/Resolved]
